FAERS Safety Report 23077836 (Version 1)
Quarter: 2023Q4

REPORT INFORMATION
  Report Type: Spontaneous
  Country: US (occurrence: US)
  Receive Date: 20231018
  Receipt Date: 20231018
  Transmission Date: 20240110
  Serious: Yes (Other)
  Sender: FDA-Public Use
  Company Number: US-HELLOPRODUCTS-20231001756

PATIENT
  Sex: Male
  Weight: 21.315 kg

DRUGS (1)
  1. HELLO KIDS WILD STRAWBERRY WILD STRAWBERRY [Suspect]
     Active Substance: SODIUM FLUORIDE
     Dosage: 1-2 TIMES DAILY
     Dates: end: 2023

REACTIONS (3)
  - Tooth infection [Recovering/Resolving]
  - Toothache [Recovering/Resolving]
  - Tooth disorder [Recovering/Resolving]

NARRATIVE: CASE EVENT DATE: 20230801
